FAERS Safety Report 8259203-0 (Version None)
Quarter: 2012Q2

REPORT INFORMATION
  Report Type: 
  Country: None (occurrence: None)
  Receive Date: 20120404
  Receipt Date: 20120330
  Transmission Date: 20120825
  Serious: Yes (Other)
  Sender: FDA-Public Use
  Company Number: US-PFIZER INC-2012046322

PATIENT
  Sex: Female
  Weight: 68.9 kg

DRUGS (1)
  1. ADVIL CONGESTION RELIEF [Suspect]
     Dosage: 10 MG, EVERY 4 HRS
     Route: 048
     Dates: start: 20120220, end: 20120222

REACTIONS (11)
  - HEADACHE [None]
  - NASAL DISCOMFORT [None]
  - OCULAR HYPERAEMIA [None]
  - DRUG INEFFECTIVE [None]
  - PAIN IN EXTREMITY [None]
  - NECK PAIN [None]
  - BLOOD PRESSURE INCREASED [None]
  - SWELLING FACE [None]
  - LIP SWELLING [None]
  - MALAISE [None]
  - MYALGIA [None]
